FAERS Safety Report 6921120-3 (Version None)
Quarter: 2010Q3

REPORT INFORMATION
  Report Type: 
  Country: None (occurrence: None)
  Receive Date: 20100812
  Receipt Date: 20100728
  Transmission Date: 20110219
  Serious: Yes (Hospitalization)
  Sender: FDA-Public Use
  Company Number: ES-AMGEN-QUU427445

PATIENT
  Age: 48 Year
  Sex: Female

DRUGS (2)
  1. CINACALCET HYDROCHLORIDE [Suspect]
     Indication: HYPERPARATHYROIDISM SECONDARY
  2. VITAMIN D [Concomitant]

REACTIONS (6)
  - BRADYCARDIA [None]
  - CARDIAC TAMPONADE [None]
  - CARDIAC VENTRICULAR DISORDER [None]
  - COMA [None]
  - HYPOTENSION [None]
  - PERICARDITIS [None]
